FAERS Safety Report 4522136-7 (Version None)
Quarter: 2004Q4

REPORT INFORMATION
  Report Type: 
  Country: None (occurrence: None)
  Receive Date: 20041209
  Receipt Date: 20040827
  Transmission Date: 20050328
  Serious: Yes (Other)
  Sender: FDA-Public Use
  Company Number: JP-ROCHE-379225

PATIENT
  Age: 9 Year
  Sex: Male
  Weight: 23 kg

DRUGS (7)
  1. ROCEPHIN [Suspect]
     Indication: OTITIS MEDIA ACUTE
     Route: 041
     Dates: start: 20040722, end: 20040804
  2. FAMOTIDINE [Concomitant]
     Indication: PROPHYLAXIS
     Route: 042
     Dates: start: 20040721, end: 20040802
  3. DILTIAZEM [Concomitant]
     Indication: HYPERTENSION
     Route: 041
     Dates: start: 20040721, end: 20040728
  4. CLARITHROMYCIN [Concomitant]
     Indication: OTITIS MEDIA
     Route: 048
     Dates: start: 20040804, end: 20040817
  5. COMELIAN [Concomitant]
     Indication: PROTEINURIA
     Route: 048
     Dates: start: 20040804, end: 20040817
  6. BLOPRESS [Concomitant]
     Indication: NEPHRITIS
     Route: 048
     Dates: start: 20040804
  7. URSO [Concomitant]
     Indication: BILE OUTPUT INCREASED
     Route: 048

REACTIONS (2)
  - CHOLECYSTITIS CHRONIC [None]
  - CHOLELITHIASIS [None]
